FAERS Safety Report 6892662-4 (Version None)
Quarter: 2010Q3

REPORT INFORMATION
  Report Type: 
  Country: None (occurrence: None)
  Receive Date: 20100731
  Receipt Date: 20080808
  Transmission Date: 20110219
  Serious: Yes (Other)
  Sender: FDA-Public Use
  Company Number: US-PFIZER INC-2007026014

PATIENT
  Sex: Female
  Weight: 89.8 kg

DRUGS (6)
  1. NEURONTIN [Suspect]
     Indication: PAIN
     Dates: start: 20030501
  2. VIOXX [Concomitant]
  3. EFFEXOR [Concomitant]
  4. TYLENOL W/ CODEINE NO. 3 [Concomitant]
  5. FLEXERIL [Concomitant]
  6. LORTAB [Concomitant]

REACTIONS (4)
  - BURSITIS [None]
  - DRUG INEFFECTIVE [None]
  - FIBROMYALGIA [None]
  - SUICIDE ATTEMPT [None]
